FAERS Safety Report 14727569 (Version 1)
Quarter: 2018Q2

REPORT INFORMATION
  Report Type: Report from Study
  Country: BR (occurrence: BR)
  Receive Date: 20180406
  Receipt Date: 20180406
  Transmission Date: 20180711
  Serious: Yes (Death)
  Sender: FDA-Public Use
  Company Number: PHHY2018BR059468

PATIENT
  Age: 81 Year
  Sex: Female
  Weight: 62 kg

DRUGS (2)
  1. TRAVATAN [Suspect]
     Active Substance: TRAVOPROST
     Indication: GLAUCOMA
     Dosage: 1 GTT, UNK (1 DRP AT NIGHT IN EACH EYE)
     Route: 047
     Dates: end: 201710
  2. COSOPT [Concomitant]
     Active Substance: DORZOLAMIDE HYDROCHLORIDE\TIMOLOL MALEATE
     Indication: GLAUCOMA
     Dosage: 2 GTT, UNK (2 DRP, (1 DROP AT 10.00 IN THE MORNING AND 1 DROP AT 22.00 AT NIGHT))
     Route: 047
     Dates: end: 201710

REACTIONS (2)
  - Death [Fatal]
  - Gait inability [Unknown]

NARRATIVE: CASE EVENT DATE: 20171026
